FAERS Safety Report 5868485-1 (Version None)
Quarter: 2008Q3

REPORT INFORMATION
  Report Type: 
  Country: None (occurrence: None)
  Receive Date: 20080903
  Receipt Date: 20080829
  Transmission Date: 20090109
  Serious: Yes (Death)
  Sender: FDA-Public Use
  Company Number: IT-ABBOTT-08P-083-0472972-00

PATIENT
  Sex: Male

DRUGS (2)
  1. VECLAM [Suspect]
     Indication: INFECTIOUS MONONUCLEOSIS
     Route: 048
     Dates: start: 20080418, end: 20080418
  2. VECLAM [Suspect]

REACTIONS (4)
  - CARDIAC ARREST [None]
  - CYANOSIS [None]
  - DYSPNOEA [None]
  - MYDRIASIS [None]
